FAERS Safety Report 4683612-X (Version None)
Quarter: 2005Q2

REPORT INFORMATION
  Report Type: 
  Country: None (occurrence: None)
  Receive Date: 20050602
  Receipt Date: 20050301
  Transmission Date: 20051028
  Serious: No
  Sender: FDA-Public Use
  Company Number: 200419737BWH

PATIENT
  Age: 65 Year
  Sex: Male

DRUGS (11)
  1. LEVITRA [Suspect]
     Indication: ERECTILE DYSFUNCTION
     Dosage: 10 MG, OW, ORAL
     Route: 048
     Dates: start: 20040705
  2. LEVITRA [Suspect]
     Dosage: 20 MG, ONCE, ORAL
     Route: 048
     Dates: start: 20040719
  3. HYTRIN [Concomitant]
  4. ALTACE [Concomitant]
  5. MULTI-VITAMINS [Concomitant]
  6. STRESSTABS [Concomitant]
  7. ASCORBIC ACID [Concomitant]
  8. VITAMIN E [Concomitant]
  9. VITAMIN B-12 [Concomitant]
  10. GLUCOSAMINE CHONDROITIN [Concomitant]
  11. GINGKO BILOBA [Concomitant]

REACTIONS (1)
  - ERECTILE DYSFUNCTION [None]
